FAERS Safety Report 6007118-0 (Version None)
Quarter: 2008Q4

REPORT INFORMATION
  Report Type: 
  Country: None (occurrence: None)
  Receive Date: 20081217
  Receipt Date: 20080117
  Transmission Date: 20090506
  Serious: Yes (Other)
  Sender: FDA-Public Use
  Company Number: US-ASTRAZENECA-2008UW01441

PATIENT
  Age: 62 Year
  Sex: Male
  Weight: 86.2 kg

DRUGS (5)
  1. CRESTOR [Suspect]
     Route: 048
     Dates: start: 20071001, end: 20071201
  2. SINGULAIR [Concomitant]
  3. NAPROXEN [Concomitant]
  4. NEXIUM [Concomitant]
  5. VITAMINS [Concomitant]

REACTIONS (3)
  - INSOMNIA [None]
  - MYALGIA [None]
  - MYOPATHY [None]
